FAERS Safety Report 10243735 (Version 2)
Quarter: 2015Q3

REPORT INFORMATION
  Report Type: Spontaneous
  Country: US (occurrence: US)
  Receive Date: 20140618
  Receipt Date: 20150719
  Transmission Date: 20151125
  Serious: Yes (Other)
  Sender: FDA-Public Use
  Company Number: US-SA-2014SA077749

PATIENT
  Age: 41 Year
  Sex: Female

DRUGS (2)
  1. PLAVIX [Suspect]
     Active Substance: CLOPIDOGREL BISULFATE
     Indication: THROMBOSIS PROPHYLAXIS
     Route: 048
     Dates: start: 200705, end: 200708
  2. ASPIRIN. [Concomitant]
     Active Substance: ASPIRIN
     Indication: PROPHYLAXIS

REACTIONS (7)
  - Haemorrhage [Unknown]
  - Cerebral haemorrhage [Unknown]
  - Tinnitus [Unknown]
  - Dizziness [Unknown]
  - Multiple injuries [Unknown]
  - Disturbance in attention [Unknown]
  - Epistaxis [Unknown]

NARRATIVE: CASE EVENT DATE: 200707
